FAERS Safety Report 4855404-X (Version None)
Quarter: 2005Q4

REPORT INFORMATION
  Report Type: 
  Country: None (occurrence: None)
  Receive Date: 20051125
  Receipt Date: 20050107
  Transmission Date: 20060501
  Serious: Yes (Disabling)
  Sender: FDA-Public Use
  Company Number: US-JNJFOC-20050100438

PATIENT
  Age: 68 Year
  Sex: Female
  Weight: 59.8748 kg

DRUGS (11)
  1. LEVAQUIN [Suspect]
     Indication: WOUND
     Dosage: 500 MG, ORAL
     Route: 048
     Dates: start: 20041203, end: 20041208
  2. NEXIUM [Concomitant]
  3. TOPAMAX [Concomitant]
  4. PRIMIDONE [Concomitant]
  5. ASPIRIN [Concomitant]
  6. VITAMIN C (ASCORBIC ACID) [Concomitant]
  7. CALCIUM GLUCONATE [Concomitant]
  8. FOLIC ACID [Concomitant]
  9. MVI (MULTIVITAMINS) [Concomitant]
  10. FISH OIL [Concomitant]
  11. TETANUS (TETANUS TOXOID) [Concomitant]

REACTIONS (1)
  - ARTHRITIS [None]
